FAERS Safety Report 15201761 (Version 2)
Quarter: 2018Q3

REPORT INFORMATION
  Report Type: Spontaneous
  Country: US (occurrence: US)
  Receive Date: 20180726
  Receipt Date: 20180807
  Transmission Date: 20181010
  Serious: Yes (Other)
  Sender: FDA-Public Use
  Company Number: US-BAYER-2018-137448

PATIENT
  Age: 91 Year
  Sex: Female
  Weight: 60 kg

DRUGS (2)
  1. ALKA?SELTZER PLUS SEVERE SINUS CONGESTION AND COUGH DAY AND NIGHT [Suspect]
     Active Substance: ACETAMINOPHEN\DEXTROMETHORPHAN HYDROBROMIDE\DOXYLAMINE SUCCINATE\PHENYLEPHRINE
     Indication: ALLERGIC RESPIRATORY SYMPTOM
     Dosage: UNK
     Route: 048
     Dates: start: 2018
  2. ALKA?SELTZER PLUS SEVERE SINUS CONGESTION AND COUGH DAY AND NIGHT [Suspect]
     Active Substance: ACETAMINOPHEN\DEXTROMETHORPHAN HYDROBROMIDE\DOXYLAMINE SUCCINATE\PHENYLEPHRINE
     Indication: NASOPHARYNGITIS

REACTIONS (4)
  - Choking [Unknown]
  - Product expiration date issue [Unknown]
  - Foreign body in respiratory tract [Unknown]
  - Wrong technique in product usage process [Unknown]

NARRATIVE: CASE EVENT DATE: 2018
